FAERS Safety Report 8507470-8 (Version None)
Quarter: 2012Q3

REPORT INFORMATION
  Report Type: 
  Country: None (occurrence: None)
  Receive Date: 20120712
  Receipt Date: 20090713
  Transmission Date: 20120928
  Serious: Yes (Other)
  Sender: FDA-Public Use
  Company Number: PHHY2009CH28712

PATIENT
  Sex: Male

DRUGS (2)
  1. ZOMETA [Suspect]
     Indication: PROSTATE CANCER METASTATIC
     Dosage: 4 MG PER MONTH (PER APPLICATION, AT FIRST WITH MONTHLY INFUSIONS)
     Dates: start: 20050101
  2. ZOMETA [Suspect]
     Dosage: 4 MG PER MONTH (LATER ON EVERY 3RD MONTH)

REACTIONS (1)
  - OSTEOMYELITIS [None]
